FAERS Safety Report 8513260-2 (Version None)
Quarter: 2012Q3

REPORT INFORMATION
  Report Type: 
  Country: None (occurrence: None)
  Receive Date: 20120716
  Receipt Date: 20120706
  Transmission Date: 20120928
  Serious: Yes (Other)
  Sender: FDA-Public Use
  Company Number: US-ELI_LILLY_AND_COMPANY-US201207002023

PATIENT
  Sex: Female

DRUGS (3)
  1. ACTOS [Concomitant]
     Dosage: 45 MG, QD
     Route: 048
  2. ACTOS [Concomitant]
     Indication: TYPE 2 DIABETES MELLITUS
     Dosage: 30 MG, QD
     Route: 048
  3. BYDUREON [Suspect]
     Indication: TYPE 2 DIABETES MELLITUS
     Dosage: 2 MG, WEEKLY (1/W)
     Route: 058

REACTIONS (9)
  - HEART RATE INCREASED [None]
  - PRURITUS GENERALISED [None]
  - NAUSEA [None]
  - FEELING JITTERY [None]
  - WEIGHT DECREASED [None]
  - PALPITATIONS [None]
  - FEELING ABNORMAL [None]
  - INJECTION SITE NODULE [None]
  - DECREASED APPETITE [None]
